FAERS Safety Report 26130654 (Version 1)
Quarter: 2025Q4

REPORT INFORMATION
  Report Type: Spontaneous
  Country: US (occurrence: None)
  Receive Date: 20251205
  Receipt Date: 20251205
  Transmission Date: 20260117
  Serious: No
  Sender: FDA-CTU
  Company Number: None

PATIENT
  Age: 55 Year
  Sex: Female

DRUGS (1)
  1. CALQUENCE [Suspect]
     Active Substance: ACALABRUTINIB
     Indication: Leukaemia
     Dosage: 100 MG ORAL
     Route: 048
     Dates: start: 20250619

REACTIONS (2)
  - Contusion [None]
  - Headache [None]

NARRATIVE: CASE EVENT DATE: 20250601
